FAERS Safety Report 25076336 (Version 1)
Quarter: 2025Q1

REPORT INFORMATION
  Report Type: Spontaneous
  Country: US (occurrence: US)
  Receive Date: 20250313
  Receipt Date: 20250313
  Transmission Date: 20250408
  Serious: No
  Sender: DR REDDYS
  Company Number: None

PATIENT
  Age: 32 Year
  Sex: Male

DRUGS (6)
  1. DOXORUBICIN [Suspect]
     Active Substance: DOXORUBICIN
     Indication: Metastases to liver
  2. DOXORUBICIN [Suspect]
     Active Substance: DOXORUBICIN
     Indication: Extra-osseous Ewing^s sarcoma
  3. IFOSFAMIDE [Concomitant]
     Active Substance: IFOSFAMIDE
     Indication: Extra-osseous Ewing^s sarcoma
  4. IFOSFAMIDE [Concomitant]
     Active Substance: IFOSFAMIDE
     Indication: Metastases to liver
  5. MESNA [Concomitant]
     Active Substance: MESNA
     Indication: Extra-osseous Ewing^s sarcoma
  6. MESNA [Concomitant]
     Active Substance: MESNA
     Indication: Metastases to liver

REACTIONS (1)
  - Drug hypersensitivity [Unknown]
